FAERS Safety Report 6250646-3 (Version None)
Quarter: 2009Q2

REPORT INFORMATION
  Report Type: 
  Country: None (occurrence: None)
  Receive Date: 20090630
  Receipt Date: 20090618
  Transmission Date: 20091009
  Serious: Yes (Hospitalization)
  Sender: FDA-Public Use
  Company Number: ES-PFIZER INC-2009226292

PATIENT
  Age: 67 Year

DRUGS (9)
  1. SUNITINIB MALATE [Suspect]
     Indication: METASTATIC RENAL CELL CARCINOMA
     Dosage: 37.5 MG/DAY
     Route: 048
     Dates: start: 20090506
  2. CAPECITABINE [Suspect]
     Indication: METASTATIC RENAL CELL CARCINOMA
     Dosage: 650 MG/M2, 2X/DAY
     Route: 048
     Dates: start: 20090506
  3. DIGOXIN [Concomitant]
     Indication: ATRIAL FLUTTER
     Dosage: UNK
     Route: 048
     Dates: start: 20040101
  4. PROPRANOLOL [Concomitant]
     Indication: HYPERTENSION
     Dosage: 10 MG, DAILY
     Route: 048
  5. HIBOR [Concomitant]
     Indication: ANTICOAGULANT THERAPY
     Dosage: 3500 IU, DAILY
     Route: 058
     Dates: start: 20090505
  6. ENALAPRIL MALEATE [Concomitant]
     Indication: HYPERTENSION
     Dosage: 20 MG, DAILY
     Route: 048
     Dates: start: 20090514
  7. FUROSEMIDE [Concomitant]
     Indication: HYPERTENSION
     Dosage: 40 MG, DAILY
     Route: 048
     Dates: start: 20090512
  8. PARACETAMOL [Concomitant]
     Dosage: UNK
     Dates: start: 20090506
  9. IBUPROFEN [Concomitant]
     Dosage: UNK
     Dates: start: 20090506

REACTIONS (5)
  - ANOREXIA [None]
  - ASTHENIA [None]
  - DIARRHOEA [None]
  - MUCOSAL INFLAMMATION [None]
  - RESPIRATORY TRACT INFECTION [None]
